FAERS Safety Report 7346566-3 (Version None)
Quarter: 2011Q1

REPORT INFORMATION
  Report Type: 
  Country: None (occurrence: None)
  Receive Date: 20110311
  Receipt Date: 20110301
  Transmission Date: 20110831
  Serious: Yes (Other)
  Sender: FDA-Public Use
  Company Number: IT-JNJFOC-20110301732

PATIENT
  Age: 60 Year
  Sex: Female

DRUGS (8)
  1. CHOLECALCIFEROL [Concomitant]
  2. SIMPONI [Suspect]
     Indication: RHEUMATOID ARTHRITIS
     Route: 058
  3. RATACAND PLUS [Concomitant]
  4. PANTOPAN [Concomitant]
  5. METHOTREXATE [Suspect]
     Indication: RHEUMATOID ARTHRITIS
  6. EUTIROX [Concomitant]
  7. FOLINA [Concomitant]
  8. TICLID [Concomitant]

REACTIONS (3)
  - PYREXIA [None]
  - COUGH [None]
  - LEUKOPENIA [None]
